FAERS Safety Report 19776534 (Version 2)
Quarter: 2021Q3

REPORT INFORMATION
  Report Type: Report from Study
  Country: US (occurrence: US)
  Receive Date: 20210901
  Receipt Date: 20210927
  Transmission Date: 20211014
  Serious: Yes (Death, Hospitalization, Other)
  Sender: FDA-Public Use
  Company Number: US-GLAXOSMITHKLINE-US2021168223

PATIENT
  Age: 76 Year
  Sex: Female

DRUGS (2)
  1. NIRAPARIB [Suspect]
     Active Substance: NIRAPARIB
     Indication: MALIGNANT NEOPLASM OF RENAL PELVIS
  2. NIRAPARIB [Suspect]
     Active Substance: NIRAPARIB
     Indication: BREAST CANCER FEMALE
     Dosage: 200 MG, QD
     Route: 048
     Dates: start: 20210803

REACTIONS (8)
  - Oropharyngeal pain [Not Recovered/Not Resolved]
  - Death [Fatal]
  - Oropharyngeal discomfort [Not Recovered/Not Resolved]
  - Off label use [Unknown]
  - Hospitalisation [Unknown]
  - Nausea [Not Recovered/Not Resolved]
  - Fatigue [Not Recovered/Not Resolved]
  - Platelet count decreased [Not Recovered/Not Resolved]

NARRATIVE: CASE EVENT DATE: 202108
